FAERS Safety Report 14342571 (Version 2)
Quarter: 2018Q1

REPORT INFORMATION
  Report Type: Spontaneous
  Country: US (occurrence: US)
  Receive Date: 20180102
  Receipt Date: 20180306
  Transmission Date: 20180509
  Serious: Yes (Other)
  Sender: FDA-Public Use
  Company Number: US-BAYER-2017-250727

PATIENT
  Age: 34 Year
  Sex: Female

DRUGS (2)
  1. MIRENA [Suspect]
     Active Substance: LEVONORGESTREL
     Dosage: 20 MCG/24HR, CONT
     Route: 015
     Dates: start: 20170308, end: 20171221
  2. MIRENA [Suspect]
     Active Substance: LEVONORGESTREL

REACTIONS (7)
  - Genital haemorrhage [None]
  - Vulvovaginal burning sensation [None]
  - Vaginal discharge [None]
  - Vaginal haemorrhage [None]
  - Device expulsion [None]
  - Abdominal pain lower [None]
  - Post procedural haemorrhage [None]

NARRATIVE: CASE EVENT DATE: 20171221
